FAERS Safety Report 16009887 (Version 3)
Quarter: 2021Q3

REPORT INFORMATION
  Report Type: Spontaneous
  Country: US (occurrence: US)
  Receive Date: 20190225
  Receipt Date: 20210810
  Transmission Date: 20211014
  Serious: Yes (Other)
  Sender: FDA-Public Use
  Company Number: US-ASTRAZENECA-2018SF34042

PATIENT
  Age: 73 Year
  Sex: Male
  Weight: 111.1 kg

DRUGS (28)
  1. NEXIUM [Suspect]
     Active Substance: ESOMEPRAZOLE MAGNESIUM
     Indication: GASTROOESOPHAGEAL REFLUX DISEASE
     Dosage: GENERIC
     Route: 048
     Dates: start: 2016
  2. SIMVASTATIN. [Concomitant]
     Active Substance: SIMVASTATIN
  3. CIALIS [Concomitant]
     Active Substance: TADALAFIL
  4. VIIBRYD [Concomitant]
     Active Substance: VILAZODONE HYDROCHLORIDE
     Indication: ANXIETY
  5. CHLORTHALIDONE. [Concomitant]
     Active Substance: CHLORTHALIDONE
  6. CLINDAMYCIN. [Concomitant]
     Active Substance: CLINDAMYCIN
     Indication: TOOTH DISORDER
  7. PEPCID [Concomitant]
     Active Substance: FAMOTIDINE
  8. DETROL [Concomitant]
     Active Substance: TOLTERODINE TARTRATE
  9. LOPRESSOR [Concomitant]
     Active Substance: METOPROLOL TARTRATE
     Indication: BLOOD PRESSURE MEASUREMENT
  10. ASPIRIN. [Concomitant]
     Active Substance: ASPIRIN
     Indication: CARDIAC DISORDER
  11. TIMOLOL. [Concomitant]
     Active Substance: TIMOLOL
  12. CUNDAMYCIN [Concomitant]
  13. NEXIUM [Suspect]
     Active Substance: ESOMEPRAZOLE MAGNESIUM
     Indication: GASTROOESOPHAGEAL REFLUX DISEASE
     Route: 048
     Dates: start: 2005, end: 2017
  14. PREVACID [Suspect]
     Active Substance: LANSOPRAZOLE
     Indication: GASTROOESOPHAGEAL REFLUX DISEASE
     Dosage: DAILY
     Route: 065
     Dates: start: 1999
  15. ATIVAN [Concomitant]
     Active Substance: LORAZEPAM
     Indication: ANXIETY
  16. AMILORIDE [Concomitant]
     Active Substance: AMILORIDE
     Indication: BLOOD PRESSURE MEASUREMENT
  17. VITAMIN C [Concomitant]
     Active Substance: ASCORBIC ACID
  18. DOXYCYCLINE. [Concomitant]
     Active Substance: DOXYCYCLINE
  19. NEXIUM [Suspect]
     Active Substance: ESOMEPRAZOLE MAGNESIUM
     Indication: GASTROOESOPHAGEAL REFLUX DISEASE
     Route: 048
     Dates: start: 2005, end: 2016
  20. IRBESARTAN. [Concomitant]
     Active Substance: IRBESARTAN
     Indication: BLOOD PRESSURE MEASUREMENT
  21. VITAMIN D [Concomitant]
     Active Substance: VITAMIN D NOS
  22. LUMIGAN [Concomitant]
     Active Substance: BIMATOPROST
  23. TOBRAMYCIN. [Concomitant]
     Active Substance: TOBRAMYCIN
  24. OLMESARTAN [Concomitant]
     Active Substance: OLMESARTAN
     Indication: BLOOD PRESSURE MEASUREMENT
  25. PREDNISONE. [Concomitant]
     Active Substance: PREDNISONE
  26. LATANOPROST. [Concomitant]
     Active Substance: LATANOPROST
     Indication: GLAUCOMA
  27. VITAMIN B [Concomitant]
     Active Substance: VITAMIN B
  28. VIOXX [Concomitant]
     Active Substance: ROFECOXIB

REACTIONS (3)
  - Renal impairment [Unknown]
  - Renal failure [Unknown]
  - Chronic kidney disease [Not Recovered/Not Resolved]

NARRATIVE: CASE EVENT DATE: 20150603
